FAERS Safety Report 6765750-0 (Version None)
Quarter: 2010Q2

REPORT INFORMATION
  Report Type: 
  Country: None (occurrence: None)
  Receive Date: 20100611
  Receipt Date: 20100602
  Transmission Date: 20101027
  Serious: Yes (Other)
  Sender: FDA-Public Use
  Company Number: FI-JNJFOC-20100601356

PATIENT
  Sex: Female

DRUGS (2)
  1. REMICADE [Suspect]
     Indication: UVEITIS
     Route: 042
  2. REMICADE [Suspect]
     Indication: ANKYLOSING SPONDYLITIS
     Route: 042

REACTIONS (2)
  - CYTOMEGALOVIRUS INFECTION [None]
  - DRUG EXPOSURE DURING PREGNANCY [None]
